FAERS Safety Report 20860888 (Version 2)
Quarter: 2022Q2

REPORT INFORMATION
  Report Type: Spontaneous
  Country: US (occurrence: US)
  Receive Date: 20220523
  Receipt Date: 20220531
  Transmission Date: 20220721
  Serious: Yes (Other)
  Sender: FDA-Public Use
  Company Number: US-ORGANON-O2205USA001738

PATIENT
  Age: 17 Year
  Sex: Female
  Weight: 88.435 kg

DRUGS (1)
  1. NEXPLANON [Suspect]
     Active Substance: ETONOGESTREL
     Indication: Contraception
     Dosage: 1 IMPLANT OF 68 MG IN LEFT ARM
     Route: 059
     Dates: start: 20220518

REACTIONS (2)
  - Syncope [Recovered/Resolved]
  - Nausea [Recovered/Resolved]

NARRATIVE: CASE EVENT DATE: 20220518
